FAERS Safety Report 19710175 (Version 1)
Quarter: 2021Q3

REPORT INFORMATION
  Report Type: Spontaneous
  Country: AR (occurrence: AR)
  Receive Date: 20210817
  Receipt Date: 20210817
  Transmission Date: 20211014
  Serious: Yes (Death, Other)
  Sender: FDA-Public Use
  Company Number: AR-PFIZER INC-2021650346

PATIENT
  Age: 72 Year
  Sex: Female

DRUGS (2)
  1. IBRANCE [Suspect]
     Active Substance: PALBOCICLIB
     Indication: BREAST CANCER METASTATIC
     Dosage: 125 MG, CYCLIC (DAILY, 3X1 SCHEME)
     Dates: start: 20190417
  2. FULVESTRANT. [Concomitant]
     Active Substance: FULVESTRANT
     Dosage: UNK

REACTIONS (12)
  - General physical health deterioration [Fatal]
  - Lung disorder [Unknown]
  - Pleural effusion [Unknown]
  - Pyrexia [Unknown]
  - Anaemia [Unknown]
  - Decreased appetite [Unknown]
  - Dyspnoea [Unknown]
  - Tumour marker decreased [Unknown]
  - Haemorrhoidal haemorrhage [Unknown]
  - Platelet count decreased [Unknown]
  - Decreased immune responsiveness [Unknown]
  - Blood count abnormal [Unknown]

NARRATIVE: CASE EVENT DATE: 2021
